FAERS Safety Report 16112647 (Version 1)
Quarter: 2019Q1

REPORT INFORMATION
  Report Type: Spontaneous
  Country: CN (occurrence: CN)
  Receive Date: 20190325
  Receipt Date: 20190325
  Transmission Date: 20190418
  Serious: Yes (Hospitalization)
  Sender: FDA-Public Use
  Company Number: CN-BAYER-2019-055149

PATIENT
  Age: 52 Year
  Sex: Male

DRUGS (1)
  1. AVELOX [Suspect]
     Active Substance: MOXIFLOXACIN HYDROCHLORIDE
     Dosage: 400 MG
     Route: 042
     Dates: start: 20190213, end: 20190218

REACTIONS (3)
  - Pneumonia [None]
  - Respiratory failure [None]
  - Interstitial lung disease [None]

NARRATIVE: CASE EVENT DATE: 2019
